FAERS Safety Report 7220051-1 (Version None)
Quarter: 2011Q1

REPORT INFORMATION
  Report Type: 
  Country: None (occurrence: None)
  Receive Date: 20110111
  Receipt Date: 20110106
  Transmission Date: 20110831
  Serious: Yes (Hospitalization)
  Sender: FDA-Public Use
  Company Number: A0903704A

PATIENT
  Age: 53 Year
  Sex: Female

DRUGS (2)
  1. UNKNOWN [Concomitant]
  2. PROMACTA [Suspect]
     Indication: IDIOPATHIC THROMBOCYTOPENIC PURPURA
     Dosage: 50MG PER DAY
     Route: 048
     Dates: start: 20100420

REACTIONS (2)
  - HIP FRACTURE [None]
  - FRACTURED COCCYX [None]
